FAERS Safety Report 5186407-6 (Version None)
Quarter: 2006Q4

REPORT INFORMATION
  Report Type: 
  Country: None (occurrence: None)
  Receive Date: 20061213
  Receipt Date: 20061130
  Transmission Date: 20070319
  Serious: Yes (Hospitalization)
  Sender: FDA-Public Use
  Company Number: 2006144467

PATIENT
  Age: 71 Year
  Sex: Male
  Weight: 112 kg

DRUGS (11)
  1. INHALED HUMAN INSULIN (INHALED HUMAN INSULIN) [Suspect]
     Indication: DIABETES MELLITUS
     Dosage: 15 MG (4 MG, 1 IN 1 D), INHALATION
     Route: 055
     Dates: start: 20060323, end: 20060510
  2. CARMEN (LERCANIDIPINE) [Concomitant]
  3. REMIPRIL (RAMIPRIL) [Concomitant]
  4. SIMVASTATIN [Concomitant]
  5. ALLOPURINOL [Concomitant]
  6. TORSEMIDE [Concomitant]
  7. LEVOTHYROXINE SODIUM [Concomitant]
  8. CARVEDILOL [Concomitant]
  9. ACETYLSALICYLIC ACID SRT [Concomitant]
  10. NOVORAPID (INSULIN ASPART) [Concomitant]
  11. PROTAPHAN (INSULIN ISOPHANE, HUMAN BIOSYNTHETIC) [Concomitant]

REACTIONS (2)
  - DRUG INEFFECTIVE [None]
  - LUNG NEOPLASM MALIGNANT [None]
